FAERS Safety Report 9330540 (Version 1)
Quarter: 2013Q2

REPORT INFORMATION
  Report Type: Spontaneous
  Country: US (occurrence: None)
  Receive Date: 20130604
  Receipt Date: 20130604
  Transmission Date: 20140414
  Serious: Yes (Disabling, Other)
  Sender: FDA-Public Use
  Company Number: None

PATIENT
  Age: 75 Year
  Sex: Female
  Weight: 77.11 kg

DRUGS (1)
  1. ROPINIROLE [Suspect]
     Indication: NEUROPATHY PERIPHERAL
     Dosage: 3 TABLETS EVENING
     Dates: start: 2011, end: 201304

REACTIONS (5)
  - Drug ineffective [None]
  - Thinking abnormal [None]
  - Gambling [None]
  - Disturbance in attention [None]
  - Gait disturbance [None]
